FAERS Safety Report 16826997 (Version 1)
Quarter: 2019Q3

REPORT INFORMATION
  Report Type: Spontaneous
  Country: US (occurrence: US)
  Receive Date: 20190919
  Receipt Date: 20190919
  Transmission Date: 20191005
  Serious: No
  Sender: FDA-Public Use
  Company Number: US-TEVA-2019-US-1110677

PATIENT
  Sex: Female
  Weight: 72.64 kg

DRUGS (1)
  1. AUSTEDO [Suspect]
     Active Substance: DEUTETRABENAZINE
     Indication: HUNTINGTON^S DISEASE
     Dosage: 2 DOSAGE FORMS DAILY; 1 DOSAGE FORM = 12 MG + 9 MG
     Route: 048
     Dates: start: 20190301

REACTIONS (2)
  - Seasonal allergy [Unknown]
  - Sneezing [Unknown]

NARRATIVE: CASE EVENT DATE: 2019
